FAERS Safety Report 23079552 (Version 2)
Quarter: 2023Q4

REPORT INFORMATION
  Report Type: Spontaneous
  Country: US (occurrence: US)
  Receive Date: 20231018
  Receipt Date: 20231128
  Transmission Date: 20240110
  Serious: Yes (Hospitalization)
  Sender: FDA-Public Use
  Company Number: US-Calliditas-2023CAL01310

PATIENT
  Age: 37 Year
  Sex: Female

DRUGS (1)
  1. TARPEYO [Suspect]
     Active Substance: BUDESONIDE
     Indication: IgA nephropathy
     Dosage: 16 MG (4 MG CAPUSLES) ONCE DAILY
     Route: 048
     Dates: start: 20220325

REACTIONS (3)
  - Adrenal insufficiency [Unknown]
  - Renal disorder [Unknown]
  - Renal procedural complication [Unknown]
